FAERS Safety Report 21753052 (Version 1)
Quarter: 2022Q4

REPORT INFORMATION
  Report Type: Spontaneous
  Country: US (occurrence: US)
  Receive Date: 20221220
  Receipt Date: 20221220
  Transmission Date: 20230113
  Serious: No
  Sender: FDA-Public Use
  Company Number: US-CELLTRION INC.-2022US001003

PATIENT

DRUGS (4)
  1. TRUXIMA [Suspect]
     Active Substance: RITUXIMAB-ABBS
     Indication: Anti-neutrophil cytoplasmic antibody positive vasculitis
     Dosage: 1000 MG EVERY 2 WEEKS (DOSE 10MG/ML)
     Dates: start: 20211209
  2. TRUXIMA [Suspect]
     Active Substance: RITUXIMAB-ABBS
     Dosage: 1000 MG EVERY 2 WEEKS (DOSE 10MG/ML)
     Dates: start: 20211223
  3. TRUXIMA [Suspect]
     Active Substance: RITUXIMAB-ABBS
     Dosage: 1000 MG EVERY 2 WEEKS (DOSE 10MG/ML)
     Dates: start: 20220106
  4. TRUXIMA [Suspect]
     Active Substance: RITUXIMAB-ABBS
     Dosage: 1000 MG EVERY 2 WEEKS (DOSE 10MG/ML)
     Dates: start: 20220120

REACTIONS (1)
  - Off label use [Unknown]
